FAERS Safety Report 18199021 (Version 1)
Quarter: 2020Q3

REPORT INFORMATION
  Report Type: Spontaneous
  Country: US (occurrence: US)
  Receive Date: 20200826
  Receipt Date: 20200826
  Transmission Date: 20201103
  Serious: Yes (Life-Threatening, Other)
  Sender: FDA-Public Use
  Company Number: US-UNITED THERAPEUTICS-UNT-2020-012625

PATIENT
  Sex: Female

DRUGS (1)
  1. TYVASO [Suspect]
     Active Substance: TREPROSTINIL
     Indication: PRODUCT USED FOR UNKNOWN INDICATION
     Dosage: UNK, QID (ONE AMPULE)

REACTIONS (5)
  - Product administration error [Unknown]
  - Cardio-respiratory arrest [Unknown]
  - Hypotension [Unknown]
  - Suicide attempt [Unknown]
  - Accidental overdose [Unknown]
